FAERS Safety Report 7124003-1 (Version None)
Quarter: 2010Q4

REPORT INFORMATION
  Report Type: 
  Country: None (occurrence: None)
  Receive Date: 20101126
  Receipt Date: 20101123
  Transmission Date: 20110411
  Serious: Yes (Other)
  Sender: FDA-Public Use
  Company Number: US-PFIZER INC-US-WYE-H18190910

PATIENT
  Sex: Female
  Weight: 63.492 kg

DRUGS (3)
  1. EFFEXOR XR [Suspect]
     Indication: DEPRESSION
     Dosage: UNKNOWN DOSE THEN INCREASED A FEW TIMES
  2. EFFEXOR XR [Suspect]
     Indication: SUICIDAL IDEATION
     Dosage: 300 MG, 1X/DAY
  3. VITAMINS [Concomitant]

REACTIONS (5)
  - DRUG EFFECT DECREASED [None]
  - PHOTOPHOBIA [None]
  - SINUS HEADACHE [None]
  - SUICIDAL IDEATION [None]
  - VISUAL IMPAIRMENT [None]
